FAERS Safety Report 6021345-8 (Version None)
Quarter: 2008Q4

REPORT INFORMATION
  Report Type: 
  Country: None (occurrence: None)
  Receive Date: 20081229
  Receipt Date: 20081229
  Transmission Date: 20090506
  Serious: Yes (Other)
  Sender: FDA-Public Use
  Company Number: A0761669A

PATIENT
  Age: 42 Year
  Sex: Male

DRUGS (2)
  1. PAROXETINE [Suspect]
     Dosage: 30MG PER DAY
     Route: 048
     Dates: start: 19990101, end: 20081120
  2. WELLBUTRIN [Concomitant]

REACTIONS (2)
  - DELUSION [None]
  - HALLUCINATION [None]
